FAERS Safety Report 12441441 (Version 1)
Quarter: 2016Q2

REPORT INFORMATION
  Report Type: Spontaneous
  Country: US (occurrence: None)
  Receive Date: 20160606
  Receipt Date: 20160606
  Transmission Date: 20160815
  Serious: Yes (Other)
  Sender: FDA-Public Use
  Company Number: None

PATIENT
  Age: 43 Year
  Sex: Female

DRUGS (1)
  1. IMATINIB, 400 MG SUN [Suspect]
     Active Substance: IMATINIB
     Indication: MALIGNANT NEOPLASM OF PLEURA
     Route: 048

REACTIONS (2)
  - Therapy cessation [None]
  - Blister [None]

NARRATIVE: CASE EVENT DATE: 20160602
